FAERS Safety Report 15518207 (Version 1)
Quarter: 2018Q4

REPORT INFORMATION
  Report Type: Spontaneous
  Country: GB (occurrence: GB)
  Receive Date: 20181017
  Receipt Date: 20181017
  Transmission Date: 20190205
  Serious: Yes (Death)
  Sender: FDA-Public Use
  Company Number: GB-PFIZER INC-2018418337

PATIENT
  Sex: Male

DRUGS (3)
  1. MORPHINE [Suspect]
     Active Substance: MORPHINE
     Dosage: 2 UNK, UNK
  2. OXYCODONE [Suspect]
     Active Substance: OXYCODONE
     Dosage: 300 MG, UNK
  3. PREGABALIN. [Suspect]
     Active Substance: PREGABALIN
     Indication: PAIN IN EXTREMITY
     Dosage: 2 DF, UNK

REACTIONS (2)
  - Death [Fatal]
  - Prescription drug used without a prescription [Unknown]
